FAERS Safety Report 14896900 (Version 1)
Quarter: 2018Q2

REPORT INFORMATION
  Report Type: Spontaneous
  Country: CN (occurrence: CN)
  Receive Date: 20180515
  Receipt Date: 20180515
  Transmission Date: 20180711
  Serious: Yes (Other)
  Sender: FDA-Public Use
  Company Number: CN-MYLANLABS-2018M1032029

PATIENT
  Age: 22 Year
  Sex: Female

DRUGS (4)
  1. CYTARABINE. [Suspect]
     Active Substance: CYTARABINE
     Indication: ACUTE MYELOID LEUKAEMIA
     Dosage: 200 MG, FROM DAY 1 TO 4
     Route: 065
     Dates: start: 20161101
  2. ARSENIC TRIOXIDE [Suspect]
     Active Substance: ARSENIC TRIOXIDE
     Indication: ACUTE MYELOID LEUKAEMIA
     Dosage: 10 MG, FROM DAY 1 TO 28
     Route: 065
     Dates: start: 20161101
  3. DAUNORUBICIN [Suspect]
     Active Substance: DAUNORUBICIN
     Indication: ACUTE MYELOID LEUKAEMIA
     Dosage: 60 MG, FROM DAY 1 TO 3
     Route: 065
     Dates: start: 20161101
  4. TRETINOIN. [Suspect]
     Active Substance: TRETINOIN
     Indication: ACUTE MYELOID LEUKAEMIA
     Dosage: 30 MG, FROM DAY 1 TO 28
     Route: 065
     Dates: start: 20161101

REACTIONS (1)
  - Choroidal neovascularisation [Recovered/Resolved]
